FAERS Safety Report 5573102-4 (Version None)
Quarter: 2007Q4

REPORT INFORMATION
  Report Type: 
  Country: None (occurrence: None)
  Receive Date: 20071220
  Receipt Date: 20071220
  Transmission Date: 20080405
  Serious: Yes (Life-Threatening, Hospitalization)
  Sender: FDA-Public Use
  Company Number: None

PATIENT
  Sex: Female
  Weight: 88.4514 kg

DRUGS (1)
  1. NUVARING [Suspect]
     Indication: METRORRHAGIA
     Dosage: 1 RING CHANGE Q WEEK P.VAGINA
     Route: 067
     Dates: start: 20070424

REACTIONS (1)
  - PULMONARY EMBOLISM [None]
